FAERS Safety Report 7392327-9 (Version None)
Quarter: 2011Q2

REPORT INFORMATION
  Report Type: 
  Country: None (occurrence: None)
  Receive Date: 20110404
  Receipt Date: 20110313
  Transmission Date: 20111010
  Serious: No
  Sender: FDA-Public Use
  Company Number: US-B.I. PHARMACEUTICALS,INC./RIDGEFIELD-2011-BP-08399BP

PATIENT
  Sex: Female

DRUGS (2)
  1. ZANTAC 150 [Suspect]
     Indication: GASTROOESOPHAGEAL REFLUX DISEASE
     Dosage: 150 MG
     Route: 048
  2. AVAPRO [Concomitant]
     Indication: HYPERTENSION

REACTIONS (4)
  - ORAL DISCOMFORT [None]
  - THROAT IRRITATION [None]
  - DIZZINESS [None]
  - HYPOTHYROIDISM [None]
